FAERS Safety Report 22889841 (Version 5)
Quarter: 2024Q3

REPORT INFORMATION
  Report Type: Report from Study
  Country: US (occurrence: US)
  Receive Date: 20230831
  Receipt Date: 20240805
  Transmission Date: 20241017
  Serious: Yes (Hospitalization)
  Sender: JAZZ
  Company Number: US-JAZZ PHARMACEUTICALS-2023-US-015270

PATIENT
  Age: 11 Year
  Sex: Male

DRUGS (5)
  1. EPIDIOLEX [Suspect]
     Active Substance: CANNABIDIOL
     Indication: Lennox-Gastaut syndrome
     Dosage: 2.5 MILLILITER, BID
     Route: 048
     Dates: start: 20210101
  2. EPIDIOLEX [Suspect]
     Active Substance: CANNABIDIOL
     Dosage: UNK
  3. EPIDIOLEX [Suspect]
     Active Substance: CANNABIDIOL
     Dosage: 3 MILLILITER, BID
     Route: 048
     Dates: start: 202303
  4. LAMOTRIGINE [Concomitant]
     Active Substance: LAMOTRIGINE
     Indication: Product used for unknown indication
     Dosage: UNK
  5. CLOBAZAM [Concomitant]
     Active Substance: CLOBAZAM
     Indication: Product used for unknown indication
     Dosage: UNK

REACTIONS (5)
  - Hospitalisation [Unknown]
  - Seizure [Recovered/Resolved]
  - Atonic seizures [Recovered/Resolved]
  - Product administration interrupted [Unknown]
  - Product administration interrupted [Recovering/Resolving]

NARRATIVE: CASE EVENT DATE: 20230717
